FAERS Safety Report 12630078 (Version 3)
Quarter: 2017Q2

REPORT INFORMATION
  Report Type: Spontaneous
  Country: ES (occurrence: ES)
  Receive Date: 20160808
  Receipt Date: 20170410
  Transmission Date: 20170830
  Serious: Yes (Other)
  Sender: FDA-Public Use
  Company Number: ES-PFIZER INC-2016372802

PATIENT
  Age: 49 Year
  Sex: Male

DRUGS (4)
  1. VALSARTAN. [Interacting]
     Active Substance: VALSARTAN
     Indication: HYPERTENSION
     Dosage: UNK
  2. METAMIZOLE [Interacting]
     Active Substance: METAMIZOLE
     Indication: INFLUENZA LIKE ILLNESS
     Dosage: 575 MG, /8 HOURS
     Route: 048
  3. GEMFIBROZIL. [Suspect]
     Active Substance: GEMFIBROZIL
     Indication: HYPERTRIGLYCERIDAEMIA
     Dosage: UNK
  4. PARACETAMOL [Concomitant]
     Active Substance: ACETAMINOPHEN
     Indication: ANALGESIC THERAPY
     Dosage: UNK

REACTIONS (6)
  - Tubulointerstitial nephritis [Recovered/Resolved]
  - Drug interaction [Recovered/Resolved]
  - Renal tubular necrosis [Recovered/Resolved]
  - Nephropathy toxic [Recovered/Resolved]
  - Fanconi syndrome [Recovered/Resolved]
  - Acute kidney injury [Recovered/Resolved]
